FAERS Safety Report 17150252 (Version 1)
Quarter: 2019Q4

REPORT INFORMATION
  Report Type: Report from Study
  Country: ES (occurrence: ES)
  Receive Date: 20191213
  Receipt Date: 20191213
  Transmission Date: 20200122
  Serious: Yes (Life-Threatening, Hospitalization)
  Sender: FDA-Public Use
  Company Number: ES-ACCORD-164778

PATIENT
  Age: 40 Year
  Sex: Female

DRUGS (3)
  1. LORMETAZEPAM [Interacting]
     Active Substance: LORMETAZEPAM
     Route: 048
     Dates: start: 20190722, end: 20190722
  2. DIAZEPAM. [Interacting]
     Active Substance: DIAZEPAM
     Route: 048
     Dates: start: 20190722, end: 20190722
  3. AMITRIPTYLINE [Suspect]
     Active Substance: AMITRIPTYLINE
     Route: 048
     Dates: start: 20190722, end: 20190722

REACTIONS (4)
  - Intentional overdose [Unknown]
  - Drug interaction [Unknown]
  - Suicide attempt [Unknown]
  - Depressed level of consciousness [Recovered/Resolved]

NARRATIVE: CASE EVENT DATE: 20190722
